FAERS Safety Report 7063608-3 (Version None)
Quarter: 2010Q4

REPORT INFORMATION
  Report Type: 
  Country: None (occurrence: None)
  Receive Date: 20101026
  Receipt Date: 20100810
  Transmission Date: 20110411
  Serious: No
  Sender: FDA-Public Use
  Company Number: US-ABBOTT-10P-163-0662769-00

PATIENT

DRUGS (3)
  1. LUPRON DEPOT [Suspect]
     Indication: PRODUCT USED FOR UNKNOWN INDICATION
     Dates: start: 20100727
  2. ESTRACE [Suspect]
     Indication: PRODUCT USED FOR UNKNOWN INDICATION
     Dates: start: 20100808
  3. VIVELLE-DOT [Suspect]
     Indication: PRODUCT USED FOR UNKNOWN INDICATION
     Dosage: PATCHES-3 ON ABDOMEN EVERY M, W, F

REACTIONS (4)
  - AFFECT LABILITY [None]
  - DIZZINESS [None]
  - PRURITUS [None]
  - RASH [None]
